FAERS Safety Report 16213667 (Version 1)
Quarter: 2019Q2

REPORT INFORMATION
  Report Type: Spontaneous
  Country: FI (occurrence: FI)
  Receive Date: 20190418
  Receipt Date: 20190418
  Transmission Date: 20190711
  Serious: Yes (Other)
  Sender: FDA-Public Use
  Company Number: FI-OTSUKA-2019_012199

PATIENT
  Age: 41 Month
  Sex: Male

DRUGS (1)
  1. ARIPIPRAZOLE. [Suspect]
     Active Substance: ARIPIPRAZOLE
     Indication: PRODUCT USED FOR UNKNOWN INDICATION
     Dosage: UNK
     Route: 048

REACTIONS (9)
  - Dermatitis atopic [Recovered/Resolved]
  - Oropharyngeal pain [Recovered/Resolved]
  - Accidental exposure to product by child [Unknown]
  - Tremor [Recovered/Resolved]
  - Sedation [Recovered/Resolved]
  - Fatigue [Recovered/Resolved]
  - Ataxia [Recovered/Resolved]
  - Toxicity to various agents [Recovered/Resolved]
  - Listless [Recovered/Resolved]
